FAERS Safety Report 4588667-9 (Version None)
Quarter: 2005Q1

REPORT INFORMATION
  Report Type: 
  Country: None (occurrence: None)
  Receive Date: 20050214
  Receipt Date: 20050214
  Transmission Date: 20050727
  Serious: No
  Sender: FDA-Public Use
  Company Number: None

PATIENT
  Age: 5 Year
  Sex: Male
  Weight: 18.5975 kg

DRUGS (1)
  1. CARBAMAZEPINE [Suspect]

REACTIONS (3)
  - GRAND MAL CONVULSION [None]
  - OXYGEN SATURATION DECREASED [None]
  - PHARMACEUTICAL PRODUCT COMPLAINT [None]
